FAERS Safety Report 11854766 (Version 1)
Quarter: 2015Q4

REPORT INFORMATION
  Report Type: Spontaneous
  Country: US (occurrence: None)
  Receive Date: 20151218
  Receipt Date: 20151218
  Transmission Date: 20160305
  Serious: No
  Sender: FDA-Public Use
  Company Number: None

PATIENT
  Age: 81 Year
  Sex: Female

DRUGS (6)
  1. IBRANCE [Suspect]
     Active Substance: PALBOCICLIB
     Indication: BREAST CANCER
     Dosage: 21 DAYS ON 7 OFF
     Route: 048
     Dates: start: 201509
  2. LETROZOLE 2.5MG SUN [Suspect]
     Active Substance: LETROZOLE
     Indication: BREAST CANCER
     Route: 048
     Dates: start: 201509
  3. ESCITALOPRAM [Concomitant]
     Active Substance: ESCITALOPRAM OXALATE
  4. METOPROLOL [Concomitant]
     Active Substance: METOPROLOL
  5. ONDANSETRON [Concomitant]
     Active Substance: ONDANSETRON
  6. GALANTAMINE. [Concomitant]
     Active Substance: GALANTAMINE

REACTIONS (3)
  - White blood cell count decreased [None]
  - Therapy cessation [None]
  - Neutrophil count decreased [None]

NARRATIVE: CASE EVENT DATE: 201512
